FAERS Safety Report 13333806 (Version 1)
Quarter: 2017Q1

REPORT INFORMATION
  Report Type: Spontaneous
  Country: US (occurrence: US)
  Receive Date: 20170314
  Receipt Date: 20170314
  Transmission Date: 20170428
  Serious: No
  Sender: FDA-Public Use
  Company Number: US-DEPOMED, INC.-US-2017DEP000034

PATIENT

DRUGS (1)
  1. GRALISE [Suspect]
     Active Substance: GABAPENTIN
     Indication: TRIGEMINAL NEURALGIA
     Dosage: 1800 MG, QD, WITH EVENING MEAL
     Route: 048
     Dates: start: 20161208

REACTIONS (3)
  - Paraesthesia [Unknown]
  - Unevaluable event [Unknown]
  - Logorrhoea [Unknown]
